FAERS Safety Report 9764554 (Version 3)
Quarter: 2014Q1

REPORT INFORMATION
  Report Type: Spontaneous
  Country: US (occurrence: US)
  Receive Date: 20131217
  Receipt Date: 20140306
  Transmission Date: 20141002
  Serious: Yes (Death, Hospitalization)
  Sender: FDA-Public Use
  Company Number: US-CELGENEUS-163-21880-13090217

PATIENT
  Age: 70 Year
  Sex: Female
  Weight: 42.31 kg

DRUGS (18)
  1. REVLIMID [Suspect]
     Indication: 5Q MINUS SYNDROME
     Dosage: 10 MILLIGRAM
     Route: 048
     Dates: start: 20130813, end: 20130828
  2. REVLIMID [Suspect]
     Dosage: 10 MILLIGRAM
     Route: 048
     Dates: start: 20130828, end: 20130828
  3. REVLIMID [Suspect]
     Dosage: 10 MILLIGRAM
     Route: 048
     Dates: start: 20130926, end: 20130930
  4. REVLIMID [Suspect]
     Dosage: 10 MILLIGRAM
     Route: 048
     Dates: start: 2013, end: 20131003
  5. REVLIMID [Suspect]
     Dosage: 2.5 MILLIGRAM
     Route: 048
     Dates: start: 20131010, end: 2013
  6. FERROUS SULFATE [Concomitant]
     Indication: PRODUCT USED FOR UNKNOWN INDICATION
     Dosage: 375
     Route: 065
  7. VITAMIN B-12 [Concomitant]
     Indication: PRODUCT USED FOR UNKNOWN INDICATION
     Route: 030
  8. FOSAMAX [Concomitant]
     Indication: PRODUCT USED FOR UNKNOWN INDICATION
     Route: 065
  9. TYLENOL [Concomitant]
     Indication: PYREXIA
     Route: 065
     Dates: start: 20130824
  10. ROBITUSSIN [Concomitant]
     Indication: COUGH
     Dosage: 100MG/5ML
     Route: 065
     Dates: start: 20130918
  11. VITAMIN E+ VITAMIN C-BETA CAROTENE [Concomitant]
     Indication: PRODUCT USED FOR UNKNOWN INDICATION
     Dosage: 600 MILLIGRAM
     Route: 065
  12. DICYCLOMINE HCL [Concomitant]
     Indication: PRODUCT USED FOR UNKNOWN INDICATION
     Dosage: 10MG/5ML
     Route: 065
  13. ZOLOFT [Concomitant]
     Indication: PRODUCT USED FOR UNKNOWN INDICATION
     Dosage: 50 MILLIGRAM
     Route: 065
  14. POTASSIUM CHLORIDE [Concomitant]
     Indication: PRODUCT USED FOR UNKNOWN INDICATION
     Dosage: 10-20MEQ
     Route: 048
  15. CALCIUM + VITAMIN D [Concomitant]
     Indication: BONE LOSS
     Dosage: 600MG/400UNTS
     Route: 065
  16. FLU VACCINE [Concomitant]
     Indication: PRODUCT USED FOR UNKNOWN INDICATION
     Route: 065
     Dates: start: 20131023, end: 20131023
  17. ASPIRIN [Concomitant]
     Indication: PRODUCT USED FOR UNKNOWN INDICATION
     Dosage: 81 MILLIGRAM
     Route: 065
  18. AVELOX [Concomitant]
     Indication: PRODUCT USED FOR UNKNOWN INDICATION
     Dosage: 400 MILLIGRAM
     Route: 065

REACTIONS (8)
  - Death [Fatal]
  - Urosepsis [Unknown]
  - Pancytopenia [Unknown]
  - Atrial fibrillation [Unknown]
  - Hypokalaemia [Unknown]
  - Diarrhoea [Unknown]
  - Renal failure acute [Unknown]
  - Rash macular [Recovered/Resolved]
